FAERS Safety Report 6042678-5 (Version None)
Quarter: 2009Q1

REPORT INFORMATION
  Report Type: 
  Country: None (occurrence: None)
  Receive Date: 20090119
  Receipt Date: 20090113
  Transmission Date: 20090719
  Serious: Yes (Hospitalization, Other)
  Sender: FDA-Public Use
  Company Number: PHHY2009BR01468

PATIENT
  Age: 67 Year
  Sex: Male

DRUGS (10)
  1. RASILEZ [Suspect]
     Indication: HYPERTENSION
     Dosage: 150 MG
     Dates: start: 20080201
  2. RASILEZ [Suspect]
     Dosage: 300 MG 28 (1 DF/DAY)
     Route: 048
     Dates: start: 20080201
  3. CRESTOR [Concomitant]
     Indication: BLOOD CHOLESTEROL
     Dosage: 1 DF (10 MG), QD
     Route: 048
     Dates: start: 20060101
  4. VASCLIN [Concomitant]
     Indication: CARDIAC DISORDER
     Dosage: 1 DF (60/100 MG)/DAY
     Route: 048
     Dates: start: 20070101
  5. LIPLESS [Concomitant]
     Indication: BLOOD TRIGLYCERIDES
     Dosage: 1 DF(100 MG)/DAY
     Route: 048
     Dates: start: 20081201
  6. LOSARTAN POTASSIUM [Concomitant]
     Dosage: 1 DF(50 MG)/DAY
     Dates: start: 20081023
  7. FAMOTIDINE [Concomitant]
     Dosage: 1 DF(40 MG)/DAY
     Dates: start: 20081023
  8. ALLOPURINOL [Concomitant]
     Dosage: 1 DF(300 MG)/DAY
     Dates: start: 20081023
  9. AMLODIPINE BESILATE [Concomitant]
     Dosage: 1 DF (5MG)/DAY
     Dates: start: 20081023
  10. METOPROLOL TARTRATE [Concomitant]
     Dosage: 1 DF(50 MG)/DAY
     Dates: start: 20081023

REACTIONS (1)
  - DENGUE FEVER [None]
